FAERS Safety Report 6332113-1 (Version None)
Quarter: 2009Q3

REPORT INFORMATION
  Report Type: 
  Country: None (occurrence: None)
  Receive Date: 20090827
  Receipt Date: 20090827
  Transmission Date: 20100115
  Serious: Yes (Hospitalization)
  Sender: FDA-Public Use
  Company Number: None

PATIENT
  Sex: Female
  Weight: 68.5 kg

DRUGS (2)
  1. CARBOPLATIN [Suspect]
     Dosage: 348 MG
     Dates: end: 20090812
  2. TAXOL [Suspect]
     Dosage: 290 MG
     Dates: end: 20090812

REACTIONS (7)
  - BLOOD PRESSURE DECREASED [None]
  - BONE PAIN [None]
  - DEHYDRATION [None]
  - DIARRHOEA [None]
  - NEUTROPENIA [None]
  - PAIN IN EXTREMITY [None]
  - THERAPEUTIC RESPONSE DECREASED [None]
